FAERS Safety Report 14124077 (Version 1)
Quarter: 2017Q4

REPORT INFORMATION
  Report Type: Spontaneous
  Country: US (occurrence: US)
  Receive Date: 20171025
  Receipt Date: 20171025
  Transmission Date: 20180321
  Serious: No
  Sender: FDA-Public Use
  Company Number: US-KERYX BIOPHARMACEUTICALS INC.-2017US003157

PATIENT

DRUGS (2)
  1. AURYXIA [Suspect]
     Active Substance: TETRAFERRIC TRICITRATE DECAHYDRATE
     Indication: PRODUCT USED FOR UNKNOWN INDICATION
     Dosage: 1-2 TAB, TID
     Route: 048
     Dates: start: 20170201
  2. AURYXIA [Suspect]
     Active Substance: TETRAFERRIC TRICITRATE DECAHYDRATE
     Dosage: 1-2 TAB, TID
     Route: 048
     Dates: start: 201703, end: 20170515

REACTIONS (2)
  - Product use complaint [Recovered/Resolved]
  - Abdominal discomfort [Recovered/Resolved]

NARRATIVE: CASE EVENT DATE: 201702
